FAERS Safety Report 8990296 (Version 1)
Quarter: 2012Q4

REPORT INFORMATION
  Report Type: 
  Country: US (occurrence: US)
  Receive Date: 20121228
  Receipt Date: 20121228
  Transmission Date: 20130627
  Serious: No
  Sender: FDA-Public Use
  Company Number: US-ASTRAZENECA-2012SE71380

PATIENT
  Age: 80 Year
  Sex: Male
  Weight: 69.4 kg

DRUGS (11)
  1. SYMBICORT [Suspect]
     Indication: CHRONIC OBSTRUCTIVE PULMONARY DISEASE
     Dosage: AS NEEDED, BID
     Route: 055
     Dates: start: 20120809
  2. SYMBICORT [Suspect]
     Indication: CHRONIC OBSTRUCTIVE PULMONARY DISEASE
     Dosage: 160/4.5 MCG, FREQUENCY UNKNOWN
     Route: 055
  3. MORPHINE [Suspect]
     Route: 065
  4. METOPROLOL [Concomitant]
     Indication: ATRIAL FLUTTER
     Route: 048
  5. METOPROLOL [Concomitant]
     Indication: ATRIAL FIBRILLATION
     Route: 048
  6. DILTIAZEM [Concomitant]
     Indication: ATRIAL FLUTTER
     Route: 048
  7. DILTIAZEM [Concomitant]
     Indication: ATRIAL FIBRILLATION
     Route: 048
  8. DIGOXIN [Concomitant]
     Indication: ATRIAL FLUTTER
     Dosage: 125MG, 5DAYS A WEEK
     Route: 048
  9. DIGOXIN [Concomitant]
     Indication: ATRIAL FIBRILLATION
     Dosage: 125MG, 5DAYS A WEEK
     Route: 048
  10. XAREL [Concomitant]
     Indication: ATRIAL FLUTTER
     Route: 048
  11. XAREL [Concomitant]
     Indication: ATRIAL FIBRILLATION
     Route: 048

REACTIONS (2)
  - Off label use [Unknown]
  - Drug hypersensitivity [Unknown]
